FAERS Safety Report 6114515-1 (Version None)
Quarter: 2009Q1

REPORT INFORMATION
  Report Type: 
  Country: None (occurrence: None)
  Receive Date: 20090313
  Receipt Date: 20090304
  Transmission Date: 20090719
  Serious: Yes (Hospitalization, Other)
  Sender: FDA-Public Use
  Company Number: US-JNJFOC-20090100875

PATIENT
  Sex: Female
  Weight: 51.8 kg

DRUGS (14)
  1. REMICADE [Suspect]
     Route: 042
  2. REMICADE [Suspect]
     Route: 042
  3. REMICADE [Suspect]
     Indication: RHEUMATOID ARTHRITIS
     Route: 042
  4. ALBUTEROL [Concomitant]
  5. FOSAMAX [Concomitant]
  6. AMLODIPINE [Concomitant]
  7. ESTRA-C [Concomitant]
  8. CALCIUM CARBONATE [Concomitant]
  9. FOLIC ACID [Concomitant]
  10. HYDROCODEINE [Concomitant]
     Indication: PAIN
     Dosage: AS NECESSARY EVERY 4-6 HOURS
  11. LEVOXYL [Concomitant]
  12. METHOTREXATE [Concomitant]
     Route: 048
  13. PREDNISONE [Concomitant]
  14. SPIRIVA [Concomitant]
     Route: 055

REACTIONS (5)
  - KNEE ARTHROPLASTY [None]
  - LUNG NEOPLASM MALIGNANT [None]
  - SINUSITIS [None]
  - SQUAMOUS CELL CARCINOMA [None]
  - UPPER RESPIRATORY TRACT INFECTION [None]
